FAERS Safety Report 4744165-0 (Version None)
Quarter: 2005Q3

REPORT INFORMATION
  Report Type: 
  Country: None (occurrence: None)
  Receive Date: 20050812
  Receipt Date: 20050805
  Transmission Date: 20060218
  Serious: Yes (Hospitalization)
  Sender: FDA-Public Use
  Company Number: US-JNJFOC-20050802407

PATIENT
  Sex: Female
  Weight: 54.43 kg

DRUGS (9)
  1. LEVAQUIN [Suspect]
     Route: 048
  2. LEVAQUIN [Suspect]
     Route: 048
  3. LEVAQUIN [Suspect]
     Route: 048
  4. DOXEPIN HCL [Concomitant]
     Route: 048
  5. PREDNISONE [Concomitant]
  6. HYDROXINE [Concomitant]
  7. BENADRYL [Concomitant]
  8. ZYRTEC [Concomitant]
  9. ALLEGRA [Concomitant]

REACTIONS (17)
  - ALOPECIA [None]
  - APHASIA [None]
  - ASTHENIA [None]
  - CHILLS [None]
  - DIVERTICULITIS [None]
  - DRUG INEFFECTIVE [None]
  - DYSAESTHESIA [None]
  - DYSPHAGIA [None]
  - DYSPNOEA [None]
  - ERYTHEMA [None]
  - LARGE INTESTINE PERFORATION [None]
  - MUSCLE CONTRACTURE [None]
  - NERVOUSNESS [None]
  - PYREXIA [None]
  - TREMOR [None]
  - URTICARIA [None]
  - VOMITING [None]
